FAERS Safety Report 6938664-0 (Version None)
Quarter: 2010Q3

REPORT INFORMATION
  Report Type: 
  Country: None (occurrence: None)
  Receive Date: 20100824
  Receipt Date: 20100811
  Transmission Date: 20110219
  Serious: Yes (Hospitalization, Other)
  Sender: FDA-Public Use
  Company Number: PHHY2010US52852

PATIENT
  Sex: Male

DRUGS (4)
  1. SANDOSTATIN [Suspect]
     Indication: BLOOD INSULIN INCREASED
     Dosage: 10 ?G/KG/D
     Route: 058
  2. SANDOSTATIN [Suspect]
     Dosage: 20 ?G/KG/D
     Route: 058
  3. ANTIBIOTICS [Concomitant]
  4. DIAZOXIDE [Concomitant]

REACTIONS (7)
  - ABDOMINAL ADHESIONS [None]
  - ABDOMINAL DISTENSION [None]
  - APPENDIX DISORDER [None]
  - GASTROINTESTINAL INFLAMMATION [None]
  - GASTROINTESTINAL PERFORATION [None]
  - PANCREATECTOMY [None]
  - VOMITING [None]
